FAERS Safety Report 20554621 (Version 14)
Quarter: 2024Q1

REPORT INFORMATION
  Report Type: Report from Study
  Country: CO (occurrence: CO)
  Receive Date: 20220304
  Receipt Date: 20240324
  Transmission Date: 20240410
  Serious: Yes (Life-Threatening, Other)
  Sender: FDA-Public Use
  Company Number: CO-NOVARTISPH-NVSC2021CO142303

PATIENT
  Sex: Female

DRUGS (4)
  1. KISQALI [Suspect]
     Active Substance: RIBOCICLIB
     Indication: Hormone receptor positive HER2 negative breast cancer
     Dosage: 600 MG, QD (THREE TABLETS)
     Route: 048
     Dates: start: 20210411
  2. KISQALI [Suspect]
     Active Substance: RIBOCICLIB
     Dosage: 400 MG, QD (TWO TABLETS)
     Route: 048
  3. FEMARA [Suspect]
     Active Substance: LETROZOLE
     Indication: Breast cancer metastatic
     Dosage: 2.5 MG, QD
     Route: 048
  4. FEMARA [Suspect]
     Active Substance: LETROZOLE
     Dosage: UNK
     Route: 048

REACTIONS (17)
  - Near death experience [Unknown]
  - Osteomyelitis [Unknown]
  - Metastases to bone [Unknown]
  - Metastasis [Unknown]
  - Breast cancer recurrent [Unknown]
  - Feeling abnormal [Unknown]
  - Decreased appetite [Unknown]
  - Feeling of body temperature change [Unknown]
  - Blood pressure decreased [Unknown]
  - Thirst [Recovered/Resolved]
  - Memory impairment [Recovering/Resolving]
  - General physical health deterioration [Unknown]
  - Inflammation [Unknown]
  - Musculoskeletal chest pain [Unknown]
  - Asthenia [Unknown]
  - Platelet count decreased [Unknown]
  - Pain [Unknown]
